FAERS Safety Report 5169208-4 (Version None)
Quarter: 2006Q4

REPORT INFORMATION
  Report Type: 
  Country: None (occurrence: None)
  Receive Date: 20061211
  Receipt Date: 20061201
  Transmission Date: 20070319
  Serious: Yes (Hospitalization, Other)
  Sender: FDA-Public Use
  Company Number: US-NOVOPROD-259030

PATIENT
  Age: 55 Year

DRUGS (1)
  1. NOVOSEVEN [Suspect]
     Indication: HAEMORRHAGE
     Dates: start: 20051222

REACTIONS (2)
  - CATHETER RELATED COMPLICATION [None]
  - THROMBOSIS IN DEVICE [None]
